FAERS Safety Report 15144478 (Version 1)
Quarter: 2018Q3

REPORT INFORMATION
  Report Type: Spontaneous
  Country: PL (occurrence: PL)
  Receive Date: 20180713
  Receipt Date: 20180713
  Transmission Date: 20181010
  Serious: Yes (Hospitalization)
  Sender: FDA-Public Use
  Company Number: PL-FRESENIUS KABI-FK201807652

PATIENT
  Age: 67 Year
  Sex: Male
  Weight: 105 kg

DRUGS (1)
  1. SODIUM CHLORIDE 0.9% SOLUTION FOR INFUSION [Suspect]
     Active Substance: SODIUM CHLORIDE
     Indication: PROPHYLAXIS AGAINST DEHYDRATION
     Route: 042
     Dates: start: 20150820, end: 20150820

REACTIONS (2)
  - Chills [Recovered/Resolved]
  - Pyrexia [Recovered/Resolved]

NARRATIVE: CASE EVENT DATE: 20150820
